FAERS Safety Report 14165356 (Version 7)
Quarter: 2022Q2

REPORT INFORMATION
  Report Type: Spontaneous
  Country: CA (occurrence: CA)
  Receive Date: 20171107
  Receipt Date: 20220628
  Transmission Date: 20220721
  Serious: Yes (Other)
  Sender: FDA-Public Use
  Company Number: CA-GLAXOSMITHKLINE-CA2017GSK091406

PATIENT

DRUGS (3)
  1. BENLYSTA [Suspect]
     Active Substance: BELIMUMAB
     Indication: Systemic lupus erythematosus
     Dosage: UNK
     Route: 042
  2. BENLYSTA [Suspect]
     Active Substance: BELIMUMAB
     Dosage: UNK
     Route: 058
  3. PREDNISONE [Concomitant]
     Active Substance: PREDNISONE
     Indication: Product used for unknown indication
     Dosage: UNK
     Dates: start: 20170610

REACTIONS (28)
  - Systemic lupus erythematosus [Unknown]
  - Pneumonia [Unknown]
  - Feeling abnormal [Unknown]
  - Peripheral swelling [Unknown]
  - Tongue ulceration [Recovering/Resolving]
  - Gingival ulceration [Recovering/Resolving]
  - Alopecia [Unknown]
  - Butterfly rash [Unknown]
  - Therapeutic product effect decreased [Unknown]
  - Pyrexia [Unknown]
  - Ear pain [Unknown]
  - Mouth ulceration [Unknown]
  - Oral pain [Unknown]
  - Dyspnoea [Unknown]
  - Fatigue [Recovering/Resolving]
  - Hypersomnia [Unknown]
  - Weight decreased [Unknown]
  - Musculoskeletal stiffness [Unknown]
  - Pain in extremity [Unknown]
  - Inflammation [Unknown]
  - Movement disorder [Unknown]
  - Bronchitis [Unknown]
  - Sinusitis [Unknown]
  - Nasopharyngitis [Unknown]
  - Cough [Unknown]
  - Oropharyngeal pain [Recovering/Resolving]
  - Nasal congestion [Recovering/Resolving]
  - Lung disorder [Recovered/Resolved]

NARRATIVE: CASE EVENT DATE: 20180104
